FAERS Safety Report 12488879 (Version 1)
Quarter: 2016Q2

REPORT INFORMATION
  Report Type: Spontaneous
  Country: US (occurrence: US)
  Receive Date: 20160622
  Receipt Date: 20160622
  Transmission Date: 20160815
  Serious: No
  Sender: FDA-Public Use
  Company Number: US-PFIZER INC-2016284898

PATIENT
  Age: 62 Year
  Sex: Female
  Weight: 85 kg

DRUGS (14)
  1. VITAMIN C [Concomitant]
     Active Substance: ASCORBIC ACID
     Dosage: 250 MG, DAILY
     Route: 048
  2. ERGOCALCIFEROL. [Concomitant]
     Active Substance: ERGOCALCIFEROL
     Dosage: 50000 IU, WEEKLY (TAKE 1 CAPSULE BY MOUTH ONCE A WEEK)
     Route: 048
  3. TENORETIC [Concomitant]
     Active Substance: ATENOLOL\CHLORTHALIDONE
     Dosage: 1 DF, DAILY (ATENOLOL 100MG- CHLORTHALLDONE 25MG)
     Route: 048
  4. PROTONIX [Concomitant]
     Active Substance: PANTOPRAZOLE SODIUM
     Dosage: 40 MG, 1X/DAY (TAKE 1 TABLET BY MOUTH EVERY MORNING)
     Route: 048
  5. FEMARA [Concomitant]
     Active Substance: LETROZOLE
     Dosage: 2.5 MG, 1X/DAY
     Route: 048
     Dates: start: 20160331
  6. PERI-COLACE [Concomitant]
     Active Substance: CASANTHRANOL\DOCUSATE SODIUM
     Dosage: 2 DF, 1X/DAY (CASANTHRANOL 8.6MG, DOCUSATE SODIUM 50 MG)
     Route: 048
  7. NORVASC [Concomitant]
     Active Substance: AMLODIPINE BESYLATE
     Dosage: 5 MG, DAILY
     Route: 048
  8. CALTRATE WITH VITAMIN D [Concomitant]
     Active Substance: CALCIUM CARBONATE\CHOLECALCIFEROL
     Dosage: 1 DF, DAILY (CALCIUM CARBONATE 600 MG, COLECALCIFEROL 400 MG)
     Route: 048
  9. IBRANCE [Suspect]
     Active Substance: PALBOCICLIB
     Indication: BREAST CANCER METASTATIC
     Dosage: 125 MG, CYCLIC (1 PO QD X2/DAYS THEN 1 DAYS OFF, REPEAT CYCLE OF 28 DAYS)
     Route: 048
     Dates: start: 20160331
  10. FERGON [Concomitant]
     Active Substance: FERROUS GLUCONATE
     Dosage: 324 MG, 3X/DAY
     Route: 048
  11. PERIACTIN [Concomitant]
     Active Substance: CYPROHEPTADINE HYDROCHLORIDE
     Indication: APPETITE DISORDER
     Dosage: 1 DF, AS NEEDED (4 MG TABLET, 1 TABLET BY MOUTH 3 (THREE) TIMES DAILY AS NEEDED)
     Route: 048
  12. ZOFRAN [Concomitant]
     Active Substance: ONDANSETRON HYDROCHLORIDE
     Indication: NAUSEA
     Dosage: 8 MG, AS NEEDED (TAKE BY MOUTH EVERY 8 (EIGHT) HOURS AS NEEDED)
     Route: 048
  13. SIMETHICONE (DIMETHICONE) [Concomitant]
     Active Substance: DIMETHICONE
     Indication: FLATULENCE
     Dosage: 1 DF, AS NEEDED (80 MG,TAKE 1 TABLET BY MOUTH 4 (FOUR) TIMES DAILY AS NEEDED)
     Route: 048
  14. ZINCATE [Concomitant]
     Dosage: 220 MG, DAILY
     Route: 048

REACTIONS (3)
  - Decreased appetite [Recovered/Resolved]
  - Oedema peripheral [Unknown]
  - Weight decreased [Unknown]
